FAERS Safety Report 13567540 (Version 3)
Quarter: 2017Q4

REPORT INFORMATION
  Report Type: Spontaneous
  Country: US (occurrence: US)
  Receive Date: 20170522
  Receipt Date: 20171004
  Transmission Date: 20180320
  Serious: Yes (Other)
  Sender: FDA-Public Use
  Company Number: US-PFIZER INC-2017220986

PATIENT
  Age: 74 Year
  Sex: Female
  Weight: 73.3 kg

DRUGS (4)
  1. IBRANCE [Suspect]
     Active Substance: PALBOCICLIB
     Dosage: 100 MG, UNK
     Route: 048
  2. IBRANCE [Suspect]
     Active Substance: PALBOCICLIB
     Dosage: 125 MG, CYCLIC (ONCE A DAY FOR 21 DAYS, OFF A WEEK)
     Route: 048
     Dates: start: 201601
  3. TAMOXIFEN [Concomitant]
     Active Substance: TAMOXIFEN
     Dosage: UNK
  4. IBRANCE [Suspect]
     Active Substance: PALBOCICLIB
     Indication: BREAST CANCER METASTATIC
     Dosage: 125 MG, UNK
     Dates: start: 20160226

REACTIONS (8)
  - Cough [Not Recovered/Not Resolved]
  - Onychoclasis [Recovering/Resolving]
  - Fatigue [Unknown]
  - Alopecia [Not Recovered/Not Resolved]
  - Heart rate increased [Unknown]
  - Skin fissures [Recovering/Resolving]
  - Neoplasm progression [Unknown]
  - Product use in unapproved indication [Unknown]
